FAERS Safety Report 15656368 (Version 2)
Quarter: 2018Q4

REPORT INFORMATION
  Report Type: Spontaneous
  Country: DE (occurrence: DE)
  Receive Date: 20181126
  Receipt Date: 20181130
  Transmission Date: 20190205
  Serious: Yes (Hospitalization, Other)
  Sender: FDA-Public Use
  Company Number: DE-PFIZER INC-2018481820

PATIENT
  Age: 60 Year
  Sex: Female
  Weight: 49 kg

DRUGS (9)
  1. CARBOPLATIN. [Suspect]
     Active Substance: CARBOPLATIN
     Indication: OVARIAN CANCER
     Dosage: 362 MG, EVERY 21 DAYS
     Route: 042
     Dates: start: 20170406
  2. CLEXANE [Concomitant]
     Active Substance: ENOXAPARIN SODIUM
     Dosage: 0.5 MG 2X/DAY 1-0-1
     Route: 058
  3. PACLITAXEL. [Suspect]
     Active Substance: PACLITAXEL
     Indication: BREAST CANCER
     Dosage: 265 MG, EVERY 21 DAYS
     Route: 042
     Dates: start: 20170406
  4. L-THYROXINE [LEVOTHYROXINE SODIUM] [Concomitant]
     Dosage: 75 UG, 1X/DAY
     Route: 048
  5. ZOFRAN [ONDANSETRON HYDROCHLORIDE] [Concomitant]
     Dosage: 4 MG, UNK
     Route: 048
  6. INNOHEP [Concomitant]
     Active Substance: TINZAPARIN SODIUM
     Dosage: 0.5 ML, UNK
     Route: 058
     Dates: start: 20170707
  7. CLEXANE [Concomitant]
     Active Substance: ENOXAPARIN SODIUM
     Dosage: 1 MG, 2X/DAY
     Route: 058
  8. AVASTIN [Suspect]
     Active Substance: BEVACIZUMAB
     Indication: OVARIAN CANCER
     Dosage: 705 MG EVERY 21 DAYS
     Route: 042
     Dates: start: 20170406, end: 20170609
  9. TOREM [TORASEMIDE] [Concomitant]
     Dosage: 10 MG, 1X/DAY
     Route: 048

REACTIONS (4)
  - Ascites [Unknown]
  - Nausea [Recovered/Resolved]
  - Pulmonary embolism [Not Recovered/Not Resolved]
  - General physical health deterioration [Recovered/Resolved]

NARRATIVE: CASE EVENT DATE: 20170618
